FAERS Safety Report 9026910 (Version 3)
Quarter: 2013Q1

REPORT INFORMATION
  Report Type: Spontaneous
  Country: US (occurrence: US)
  Receive Date: 20130123
  Receipt Date: 20130307
  Transmission Date: 20140127
  Serious: Yes (Hospitalization, Other)
  Sender: FDA-Public Use
  Company Number: US-PFIZER INC-2013026553

PATIENT
  Age: 56 Year
  Sex: Male
  Weight: 108 kg

DRUGS (21)
  1. LYRICA [Suspect]
     Indication: NEUROPATHY PERIPHERAL
     Dosage: 200 MG, 3X/DAY
     Route: 048
  2. LYRICA [Suspect]
     Dosage: 300 MG, 3X/DAY (2 CAPS 150MG)
     Route: 048
  3. XANAX [Concomitant]
     Dosage: 1 MG, 3X/DAY PRN
     Route: 048
     Dates: start: 20130211
  4. AMBIEN [Concomitant]
     Dosage: 10 MG, QHS PRN
     Route: 048
     Dates: start: 20130211
  5. PAROXETINE HYDROCHLORIDE [Concomitant]
     Dosage: 30 MG, 2 PO DAILY
     Route: 048
     Dates: start: 20130211
  6. OXYCODONE HYDROCHLORIDE [Concomitant]
     Dosage: 30 MG, 3X/DAY, PRN
     Route: 048
     Dates: start: 20130211
  7. SYMBICORT [Concomitant]
     Dosage: 160-4.5 MCG/ACT, 2 PUFFS PO BID
     Route: 048
     Dates: start: 20130211
  8. METFORMIN HYDROCHLORIDE [Concomitant]
     Dosage: 1000 MG, 1 PO QAM 1/2 PO QNOON 1 PO QEVENING MEAL
     Route: 048
     Dates: start: 20130211
  9. NASONEX [Concomitant]
     Dosage: 1 SPRAY EACH NOSTRIL BID
     Route: 045
     Dates: start: 20130211
  10. AVODART [Concomitant]
     Dosage: 0.5 MG, 1 PO QD
     Route: 048
     Dates: start: 20130211
  11. NEXIUM [Concomitant]
     Dosage: 40 MG, 2X/DAY
     Route: 048
     Dates: start: 20130211
  12. LIDODERM [Concomitant]
     Dosage: 5 %, AS DIRECTED- TOPICALLY TO AREA OF PAIN
     Route: 061
     Dates: start: 20130211
  13. ARFORMOTEROL TARTRATE [Concomitant]
     Dosage: AS DIRECTED FOR NEBULIZER
     Dates: start: 20130211
  14. QVAR [Concomitant]
     Dosage: 40 MCG/ACT AERS, 1 PUFF PO BID
     Route: 048
     Dates: start: 20130211
  15. POTASSIUM GLUCONATE [Concomitant]
     Dosage: 595 MG, 1X/DAY
     Route: 048
     Dates: start: 20130211
  16. JANUVIA [Concomitant]
     Dosage: 100 MG, 1X/DAY
     Route: 048
     Dates: start: 20130211
  17. LISINOPRIL [Concomitant]
     Dosage: 40 MG, 1X/DAY
     Route: 048
     Dates: start: 20130211
  18. SIMVASTATIN [Concomitant]
     Dosage: 40 MG, 1X/DAY
     Route: 048
     Dates: start: 20130211
  19. REQUIP [Concomitant]
     Dosage: 2 MG, 1X/DAY
     Route: 048
     Dates: start: 20130211
  20. HYDROCHLOROTHIAZIDE [Concomitant]
     Dosage: 25 MG, 1 PO QAM
     Route: 048
     Dates: start: 20130211
  21. GLIMEPIRIDE [Concomitant]
     Dosage: 2 MG, 1X/DAY
     Route: 048
     Dates: start: 20130211

REACTIONS (13)
  - Diabetes mellitus inadequate control [Recovering/Resolving]
  - Atrial fibrillation [Unknown]
  - Intervertebral disc disorder [Unknown]
  - Overdose [Recovered/Resolved]
  - Drug administration error [Recovered/Resolved]
  - Sedation [Recovered/Resolved]
  - Fall [Unknown]
  - Musculoskeletal chest pain [Not Recovered/Not Resolved]
  - Chest pain [Unknown]
  - Depression [Not Recovered/Not Resolved]
  - Hyperlipidaemia [Unknown]
  - Sleep disorder [Unknown]
  - Restless legs syndrome [Unknown]
